FAERS Safety Report 26156250 (Version 1)
Quarter: 2025Q4

REPORT INFORMATION
  Report Type: Spontaneous
  Country: US (occurrence: US)
  Receive Date: 20251215
  Receipt Date: 20251215
  Transmission Date: 20260118
  Serious: No
  Sender: BAYER HEALTHCARE LLC
  Company Number: US-BAYER-2025A164250

PATIENT
  Age: 70 Year
  Sex: Female

DRUGS (2)
  1. MIRALAX [Suspect]
     Active Substance: POLYETHYLENE GLYCOL 3350
     Indication: Bowel preparation
     Dosage: 1 CAPFUL FOR EVERY 8 OZ OF LIQUID.32 OZ FIRST AND THE OTHER 32 OZ LATER.
     Route: 048
  2. MIRALAX [Suspect]
     Active Substance: POLYETHYLENE GLYCOL 3350
     Indication: Colonoscopy

REACTIONS (2)
  - Product use in unapproved indication [Recovered/Resolved]
  - Product use issue [Unknown]
